FAERS Safety Report 22108859 (Version 1)
Quarter: 2023Q1

REPORT INFORMATION
  Report Type: Spontaneous
  Country: DK (occurrence: None)
  Receive Date: 20230317
  Receipt Date: 20230317
  Transmission Date: 20230418
  Serious: Yes (Life-Threatening, Hospitalization)
  Sender: FDA-Public Use
  Company Number: 2023A063180

PATIENT
  Age: 66 Year
  Sex: Male
  Weight: 78 kg

DRUGS (8)
  1. DAPAGLIFLOZIN [Suspect]
     Active Substance: DAPAGLIFLOZIN
     Indication: Diabetes mellitus
     Dosage: STRENGTH: 10 MG
     Route: 048
     Dates: start: 20220427, end: 20221218
  2. OZEMPIC [Concomitant]
     Active Substance: SEMAGLUTIDE
     Indication: Diabetes mellitus
     Dates: start: 20221017
  3. METFORMIN [Concomitant]
     Active Substance: METFORMIN HYDROCHLORIDE
     Indication: Diabetes mellitus
     Dates: start: 20220317
  4. LANSOPRAM [Concomitant]
     Indication: Gastrooesophageal reflux disease
     Dates: start: 20201216
  5. NORVASC [Concomitant]
     Active Substance: AMLODIPINE BESYLATE
     Indication: Hypertension
     Dates: start: 20150930
  6. LOSARTAN [Concomitant]
     Active Substance: LOSARTAN
     Indication: Hypertension
     Dates: start: 20210114
  7. HJERTEMAGNYL [Concomitant]
     Indication: Prophylaxis
     Dates: start: 20170614
  8. METOPROLOL TARTRATE [Concomitant]
     Active Substance: METOPROLOL TARTRATE
     Indication: Hypertension
     Dates: start: 20150930

REACTIONS (4)
  - Dysuria [Unknown]
  - Escherichia bacteraemia [Unknown]
  - Escherichia urinary tract infection [Unknown]
  - Prostatic abscess [Recovered/Resolved]

NARRATIVE: CASE EVENT DATE: 20220101
